FAERS Safety Report 10661911 (Version 1)
Quarter: 2014Q4

REPORT INFORMATION
  Report Type: Spontaneous
  Country: US (occurrence: None)
  Receive Date: 20141216
  Receipt Date: 20141216
  Transmission Date: 20150529
  Serious: No
  Sender: FDA-Public Use
  Company Number: CDX0364

PATIENT
  Sex: Male

DRUGS (1)
  1. CEDAX [Suspect]
     Active Substance: CEFTIBUTEN DIHYDRATE

REACTIONS (3)
  - Rash [None]
  - Mouth swelling [None]
  - Hypersensitivity [None]
